FAERS Safety Report 21169501 (Version 6)
Quarter: 2022Q4

REPORT INFORMATION
  Report Type: Report from Study
  Country: CA (occurrence: CA)
  Receive Date: 20220804
  Receipt Date: 20221230
  Transmission Date: 20230113
  Serious: Yes (Other)
  Sender: FDA-Public Use
  Company Number: CA-JNJFOC-20220423758

PATIENT
  Age: 39 Year
  Sex: Male
  Weight: 102 kg

DRUGS (3)
  1. STELARA [Suspect]
     Active Substance: USTEKINUMAB
     Indication: Crohn^s disease
     Route: 058
     Dates: start: 20211222
  2. STELARA [Suspect]
     Active Substance: USTEKINUMAB
     Dosage: EXPIRY DATE- 31-OCT-2024, 31-JAN-2025?V6: BATCH NUMBER: MBS4EMG, EXPIRATION DATE 28-FEB-2025?V7:BATC
     Route: 058
  3. STELARA [Suspect]
     Active Substance: USTEKINUMAB
     Dosage: RE-INDUCTION
     Route: 042

REACTIONS (12)
  - Rectal abscess [Unknown]
  - Perineal abscess [Not Recovered/Not Resolved]
  - Uveitis [Recovering/Resolving]
  - Fistula discharge [Unknown]
  - Anal fistula [Unknown]
  - Hidradenitis [Not Recovered/Not Resolved]
  - Faeces soft [Not Recovered/Not Resolved]
  - Faecal calprotectin increased [Unknown]
  - Frequent bowel movements [Not Recovered/Not Resolved]
  - Mucous stools [Unknown]
  - Diarrhoea [Unknown]
  - Off label use [Unknown]

NARRATIVE: CASE EVENT DATE: 20220101
